FAERS Safety Report 6089774-4 (Version None)
Quarter: 2009Q1

REPORT INFORMATION
  Report Type: 
  Country: None (occurrence: None)
  Receive Date: 20090220
  Receipt Date: 20081216
  Transmission Date: 20090719
  Serious: Yes (Hospitalization)
  Sender: FDA-Public Use
  Company Number: 430023M08USA

PATIENT
  Age: 62 Year
  Sex: Male
  Weight: 73 kg

DRUGS (13)
  1. NOVANTRONE [Suspect]
     Indication: PROSTATE CANCER
     Dosage: 22 MG, 1 IN 3 WEEKS, INTRAVENOUS
     Route: 042
     Dates: start: 20081022, end: 20081204
  2. CETUXIMAB (CETUXIMAB) [Suspect]
     Indication: PROSTATE CANCER
     Dosage: 744 MG, 1 IN 1 NOT REPORTED, INTRAVENOUS, 460 MG, 1 IN 1 WEEKS, INTRAVENOUS
     Route: 042
     Dates: start: 20081022, end: 20081022
  3. CETUXIMAB (CETUXIMAB) [Suspect]
     Indication: PROSTATE CANCER
     Dosage: 744 MG, 1 IN 1 NOT REPORTED, INTRAVENOUS, 460 MG, 1 IN 1 WEEKS, INTRAVENOUS
     Route: 042
     Dates: end: 20081204
  4. FENTANYL [Concomitant]
  5. DILAUDID [Concomitant]
  6. ZOFRAN [Concomitant]
  7. REGLAN [Concomitant]
  8. ATIVAN [Concomitant]
  9. DULCOLAX [Concomitant]
  10. CEFTIN [Concomitant]
  11. DECADRON [Concomitant]
  12. LACTULOSE [Concomitant]
  13. LORAZEPAM [Concomitant]

REACTIONS (21)
  - ASPARTATE AMINOTRANSFERASE INCREASED [None]
  - BLEPHARITIS [None]
  - BLOOD ALBUMIN DECREASED [None]
  - BLOOD ALKALINE PHOSPHATASE INCREASED [None]
  - BLOOD CALCIUM DECREASED [None]
  - BLOOD PRESSURE DIASTOLIC DECREASED [None]
  - COMPRESSION FRACTURE [None]
  - DEHYDRATION [None]
  - LIVER DISORDER [None]
  - LOBAR PNEUMONIA [None]
  - LUNG INFECTION [None]
  - MASS [None]
  - METASTASES TO BONE [None]
  - METASTASES TO LIVER [None]
  - MYALGIA [None]
  - NAUSEA [None]
  - OEDEMA PERIPHERAL [None]
  - PANCYTOPENIA [None]
  - SKIN DISCOLOURATION [None]
  - SKIN TURGOR DECREASED [None]
  - VOMITING [None]
